FAERS Safety Report 8523283-5 (Version None)
Quarter: 2012Q3

REPORT INFORMATION
  Report Type: 
  Country: None (occurrence: None)
  Receive Date: 20120720
  Receipt Date: 20101214
  Transmission Date: 20120928
  Serious: Yes (Other)
  Sender: FDA-Public Use
  Company Number: US-BAYER-201014095NA

PATIENT
  Age: 23 Year
  Sex: Female
  Weight: 57 kg

DRUGS (8)
  1. YASMIN [Suspect]
     Indication: PRODUCT USED FOR UNKNOWN INDICATION
     Route: 048
     Dates: start: 20040120, end: 20090521
  2. YASMIN [Suspect]
     Dosage: UNK
  3. IBUPROFEN [Concomitant]
  4. SINGULAIR [Concomitant]
     Dates: start: 20050101
  5. YAZ [Suspect]
     Indication: PRODUCT USED FOR UNKNOWN INDICATION
     Route: 048
     Dates: start: 20090521
  6. PROVENTIL [Concomitant]
     Dates: start: 20050101
  7. ACYCLOVIR [Concomitant]
     Dates: start: 20030101
  8. DROSPIRENONE AND ETHINYL ESTRADIOL [Suspect]
     Indication: PRODUCT USED FOR UNKNOWN INDICATION
     Route: 048
     Dates: start: 20080716, end: 20081202

REACTIONS (4)
  - NAUSEA [None]
  - GALLBLADDER DISORDER [None]
  - PAIN [None]
  - ABDOMINAL PAIN UPPER [None]
